FAERS Safety Report 4382376-7 (Version None)
Quarter: 2004Q2

REPORT INFORMATION
  Report Type: 
  Country: None (occurrence: None)
  Receive Date: 20040615
  Receipt Date: 20040607
  Transmission Date: 20050107
  Serious: Yes (Other)
  Sender: FDA-Public Use
  Company Number: S04-USA-01682-01

PATIENT
  Age: 50 Year
  Sex: Female

DRUGS (2)
  1. LEXAPRO [Suspect]
     Dates: end: 20040101
  2. LEXAPRO [Suspect]
     Dates: start: 20040101

REACTIONS (1)
  - INAPPROPRIATE ANTIDIURETIC HORMONE SECRETION [None]
